APPROVED DRUG PRODUCT: TUSSICAPS
Active Ingredient: CHLORPHENIRAMINE POLISTIREX; HYDROCODONE POLISTIREX
Strength: EQ 4MG MALEATE;EQ 5MG BITARTRATE
Dosage Form/Route: CAPSULE, EXTENDED RELEASE;ORAL
Application: A077273 | Product #002
Applicant: ECR PHARMA
Approved: Sep 24, 2007 | RLD: No | RS: No | Type: DISCN